FAERS Safety Report 13309234 (Version 1)
Quarter: 2017Q1

REPORT INFORMATION
  Report Type: Spontaneous
  Country: US (occurrence: US)
  Receive Date: 20170308
  Receipt Date: 20170308
  Transmission Date: 20170428
  Serious: Yes (Other)
  Sender: FDA-Public Use
  Company Number: US-ELI_LILLY_AND_COMPANY-US201608014097

PATIENT
  Sex: Male
  Weight: 82.99 kg

DRUGS (8)
  1. CYMBALTA [Suspect]
     Active Substance: DULOXETINE HYDROCHLORIDE
     Indication: ANXIETY
     Dosage: 60 MG, QOD
     Route: 048
  2. ALBUTEROL HFA [Concomitant]
     Active Substance: ALBUTEROL SULFATE
     Dosage: UNK, QD
     Route: 055
  3. CYMBALTA [Suspect]
     Active Substance: DULOXETINE HYDROCHLORIDE
     Dosage: 90 MG, QD
     Route: 048
     Dates: start: 20131127
  4. CYMBALTA [Suspect]
     Active Substance: DULOXETINE HYDROCHLORIDE
     Dosage: 60 MG, QD
     Route: 048
     Dates: start: 20131219
  5. XANAX [Concomitant]
     Active Substance: ALPRAZOLAM
     Indication: ANXIETY
     Dosage: 0.5 MG, PRN
     Route: 048
  6. CYMBALTA [Suspect]
     Active Substance: DULOXETINE HYDROCHLORIDE
     Indication: DEPRESSION
     Dosage: 60 MG, QD
     Route: 048
     Dates: start: 201210
  7. CYMBALTA [Suspect]
     Active Substance: DULOXETINE HYDROCHLORIDE
     Dosage: 30 MG, QD
     Route: 048
     Dates: start: 20131016
  8. LAMICTAL [Concomitant]
     Active Substance: LAMOTRIGINE
     Dosage: 50 MG, QD

REACTIONS (17)
  - Confusional state [Unknown]
  - Affect lability [Unknown]
  - Hypomania [Unknown]
  - Insomnia [Unknown]
  - Hyperhidrosis [Unknown]
  - Lethargy [Unknown]
  - Agitation [Unknown]
  - Drug withdrawal syndrome [Unknown]
  - Nausea [Unknown]
  - Headache [Unknown]
  - Paraesthesia [Unknown]
  - Fatigue [Unknown]
  - Irritability [Unknown]
  - Suicidal ideation [Unknown]
  - Dysphoria [Unknown]
  - Wrong technique in product usage process [Unknown]
  - Anxiety [Unknown]
